FAERS Safety Report 20624692 (Version 1)
Quarter: 2022Q1

REPORT INFORMATION
  Report Type: Spontaneous
  Country: US (occurrence: None)
  Receive Date: 20220323
  Receipt Date: 20220323
  Transmission Date: 20220423
  Serious: Yes (Death, Hospitalization)
  Sender: FDA-Public Use
  Company Number: US-MDD US Operations-MDD202202-000305

PATIENT
  Age: 76 Year
  Sex: Male

DRUGS (5)
  1. APOKYN [Suspect]
     Active Substance: APOMORPHINE HYDROCHLORIDE
     Indication: Parkinson^s disease
     Dates: start: 201901
  2. APOKYN [Suspect]
     Active Substance: APOMORPHINE HYDROCHLORIDE
     Route: 058
     Dates: start: 20190114
  3. RYTARY [Concomitant]
     Active Substance: CARBIDOPA\LEVODOPA
     Dosage: NOT PROVIDED
  4. AZILECT [Concomitant]
     Active Substance: RASAGILINE MESYLATE
     Dosage: NOT PROVIDED
  5. ROPINIROLE [Concomitant]
     Active Substance: ROPINIROLE
     Dosage: NOT PROVIDED

REACTIONS (4)
  - Death [Fatal]
  - Fall [Unknown]
  - Rib fracture [Unknown]
  - Pneumothorax [Unknown]

NARRATIVE: CASE EVENT DATE: 20220215
